FAERS Safety Report 16929342 (Version 1)
Quarter: 2019Q4

REPORT INFORMATION
  Report Type: Spontaneous
  Country: US (occurrence: US)
  Receive Date: 20190826
  Receipt Date: 20190826
  Transmission Date: 20200122
  Serious: Yes (Hospitalization)
  Sender: FDA-Public Use
  Company Number: None

PATIENT
  Age: 78 Year
  Sex: Female

DRUGS (9)
  1. CELECOXIB. [Concomitant]
     Active Substance: CELECOXIB
  2. ATORVASTATIN [Concomitant]
     Active Substance: ATORVASTATIN
  3. LEVOTHYROXIN [Concomitant]
     Active Substance: LEVOTHYROXINE
  4. POT CL MICRO [Concomitant]
  5. WARFARIN [Concomitant]
     Active Substance: WARFARIN
  6. ESBRIET [Suspect]
     Active Substance: PIRFENIDONE
     Indication: IDIOPATHIC PULMONARY FIBROSIS
     Route: 048
     Dates: start: 20180504
  7. XARELTO [Concomitant]
     Active Substance: RIVAROXABAN
  8. METOPROL SUC [Concomitant]
  9. TORSEMIDE. [Concomitant]
     Active Substance: TORSEMIDE

REACTIONS (4)
  - Abdominal distension [None]
  - Flatulence [None]
  - Aortic valve replacement [None]
  - Therapy cessation [None]

NARRATIVE: CASE EVENT DATE: 201908
